FAERS Safety Report 7515721-1 (Version None)
Quarter: 2011Q2

REPORT INFORMATION
  Report Type: 
  Country: None (occurrence: None)
  Receive Date: 20110601
  Receipt Date: 20100723
  Transmission Date: 20111010
  Serious: Yes (Death, Hospitalization, Disabling, Other)
  Sender: FDA-Public Use
  Company Number: US-PFIZER INC-2010045210

PATIENT
  Sex: Male

DRUGS (8)
  1. ZYPREXA [Concomitant]
     Indication: SCHIZOPHRENIA
     Dosage: UNK
     Dates: start: 20020101, end: 20080101
  2. CHANTIX [Suspect]
     Indication: SMOKING CESSATION THERAPY
     Dosage: 0.5/1MG
     Route: 048
     Dates: start: 20070901, end: 20080201
  3. INSULIN [Concomitant]
     Indication: DIABETES MELLITUS
     Dosage: UNK
     Dates: start: 20020101, end: 20080101
  4. DEPAKOTE [Concomitant]
     Indication: DEPRESSION
     Dosage: UNK
     Dates: start: 20020101, end: 20080101
  5. ATENOLOL [Concomitant]
     Indication: HYPERTENSION
     Dosage: UNK
     Dates: start: 20020101, end: 20080101
  6. CLONIDINE [Concomitant]
     Indication: HYPERTENSION
     Dosage: UNK
     Dates: start: 20020101, end: 20080101
  7. AVANDIA [Concomitant]
     Indication: DIABETES MELLITUS
     Dosage: UNK
     Dates: start: 20020101, end: 20080101
  8. DEPAKOTE [Concomitant]
     Indication: CONVULSION

REACTIONS (7)
  - ANXIETY [None]
  - PARANOIA [None]
  - COMPLETED SUICIDE [None]
  - DEPRESSION [None]
  - ABNORMAL BEHAVIOUR [None]
  - ANGER [None]
  - HOSTILITY [None]
